FAERS Safety Report 4431607-3 (Version None)
Quarter: 2004Q3

REPORT INFORMATION
  Report Type: 
  Country: None (occurrence: None)
  Receive Date: 20040726
  Receipt Date: 20040408
  Transmission Date: 20050211
  Serious: No
  Sender: FDA-Public Use
  Company Number: USA040464525

PATIENT
  Age: 84 Year
  Sex: Female

DRUGS (8)
  1. FORTEO [Suspect]
     Indication: OSTEOPOROSIS
     Dosage: 20 UG DAY
     Dates: start: 20030626
  2. PREDNISONE [Concomitant]
  3. APO-METOPROLOL (METOPROLOL TARTRATE) [Concomitant]
  4. ASPIRIN [Concomitant]
  5. PLAVIX [Concomitant]
  6. IMURAN [Concomitant]
  7. LIPITOR [Concomitant]
  8. ZOLOFT [Concomitant]

REACTIONS (5)
  - BONE PAIN [None]
  - DRY MOUTH [None]
  - HEADACHE [None]
  - OEDEMA MOUTH [None]
  - STOMATITIS [None]
